FAERS Safety Report 19802797 (Version 1)
Quarter: 2021Q3

REPORT INFORMATION
  Report Type: Report from Study
  Country: PT (occurrence: PT)
  Receive Date: 20210908
  Receipt Date: 20210908
  Transmission Date: 20211014
  Serious: Yes (Other)
  Sender: FDA-Public Use
  Company Number: PT-BIOGEN-2021BI01045216

PATIENT
  Age: 30 Year
  Sex: Female

DRUGS (7)
  1. PERMADOZE [Concomitant]
     Indication: PRODUCT USED FOR UNKNOWN INDICATION
     Route: 065
  2. IODINE. [Concomitant]
     Active Substance: IODINE
     Indication: PRODUCT USED FOR UNKNOWN INDICATION
     Route: 065
  3. ASPIRIN. [Concomitant]
     Active Substance: ASPIRIN
     Indication: FLUSHING
     Route: 065
  4. TECFIDERA [Suspect]
     Active Substance: DIMETHYL FUMARATE
     Indication: RELAPSING-REMITTING MULTIPLE SCLEROSIS
     Dosage: MAINTENANCE DOSE
     Route: 048
     Dates: start: 20180411, end: 20210802
  5. VIGANTOL [Concomitant]
     Indication: PRODUCT USED FOR UNKNOWN INDICATION
     Route: 065
  6. FOLIC ACID. [Concomitant]
     Active Substance: FOLIC ACID
     Indication: PRODUCT USED FOR UNKNOWN INDICATION
     Route: 065
  7. TECFIDERA [Suspect]
     Active Substance: DIMETHYL FUMARATE
     Route: 048
     Dates: start: 202108

REACTIONS (2)
  - Maternal exposure during pregnancy [Recovered/Resolved]
  - Abortion spontaneous [Recovered/Resolved]

NARRATIVE: CASE EVENT DATE: 202107
